FAERS Safety Report 7997389-3 (Version None)
Quarter: 2011Q4

REPORT INFORMATION
  Report Type: 
  Country: None (occurrence: None)
  Receive Date: 20111221
  Receipt Date: 20111216
  Transmission Date: 20120403
  Serious: Yes (Other)
  Sender: FDA-Public Use
  Company Number: US-JNJFOC-20111207706

PATIENT

DRUGS (2)
  1. CETIRIZINE HCL [Suspect]
     Route: 065
  2. CETIRIZINE HCL [Suspect]
     Indication: PRODUCT USED FOR UNKNOWN INDICATION
     Dosage: 10 MG DAILY FOR A WEEK
     Route: 065

REACTIONS (1)
  - SEDATION [None]
